FAERS Safety Report 4933156-2 (Version None)
Quarter: 2006Q1

REPORT INFORMATION
  Report Type: 
  Country: None (occurrence: None)
  Receive Date: 20060118
  Receipt Date: 20051110
  Transmission Date: 20060701
  Serious: Yes (Death, Hospitalization)
  Sender: FDA-Public Use
  Company Number: US-JNJFOC-20051004750

PATIENT
  Age: 52 Year
  Sex: Male
  Weight: 68.0396 kg

DRUGS (1)
  1. DOXIL [Suspect]
     Indication: MULTIPLE MYELOMA
     Dosage: INTRAVENOUS
     Route: 042
     Dates: end: 20050705

REACTIONS (1)
  - MULTIPLE MYELOMA [None]
